FAERS Safety Report 25217353 (Version 1)
Quarter: 2025Q2

REPORT INFORMATION
  Report Type: Spontaneous
  Country: FR (occurrence: FR)
  Receive Date: 20250420
  Receipt Date: 20250420
  Transmission Date: 20250717
  Serious: Yes (Hospitalization, Other)
  Sender: AUROBINDO
  Company Number: FR-AFSSAPS-CF2025000209

PATIENT
  Age: 67 Year
  Sex: Male
  Weight: 108 kg

DRUGS (1)
  1. CEFIXIME [Suspect]
     Active Substance: CEFIXIME
     Indication: Proteus infection
     Dosage: 200 MILLIGRAM, TWO TIMES A DAY
     Route: 048
     Dates: start: 20250321, end: 20250323

REACTIONS (1)
  - Immune thrombocytopenia [Recovered/Resolved]

NARRATIVE: CASE EVENT DATE: 20250322
